FAERS Safety Report 6803350-4 (Version None)
Quarter: 2010Q2

REPORT INFORMATION
  Report Type: 
  Country: None (occurrence: None)
  Receive Date: 20100628
  Receipt Date: 20100618
  Transmission Date: 20101027
  Serious: Yes (Disabling, Other)
  Sender: FDA-Public Use
  Company Number: GB-ROCHE-708410

PATIENT
  Sex: Female
  Weight: 60 kg

DRUGS (6)
  1. HERCEPTIN [Suspect]
     Indication: BREAST CANCER
     Route: 042
     Dates: start: 20090915
  2. HERCEPTIN [Suspect]
     Route: 042
  3. DOCETAXEL [Suspect]
     Indication: BREAST CANCER
     Route: 042
     Dates: start: 20090915, end: 20091201
  4. DEXAMETHASONE [Concomitant]
     Indication: CHEMOTHERAPY
  5. METOCLOPRAMIDE [Concomitant]
     Indication: CHEMOTHERAPY
     Dosage: PM
  6. LETROZOLE [Concomitant]
     Indication: UNEVALUABLE EVENT
     Route: 048
     Dates: start: 20100101

REACTIONS (4)
  - ASTHENIA [None]
  - MALAISE [None]
  - MOTOR NEURONE DISEASE [None]
  - PERIPHERAL MOTOR NEUROPATHY [None]
